FAERS Safety Report 5383193-1 (Version None)
Quarter: 2007Q3

REPORT INFORMATION
  Report Type: 
  Country: None (occurrence: None)
  Receive Date: 20070710
  Receipt Date: 20070628
  Transmission Date: 20080115
  Serious: Yes (Other)
  Sender: FDA-Public Use
  Company Number: US-PFIZER INC-2007054096

PATIENT
  Sex: Female
  Weight: 68.181 kg

DRUGS (10)
  1. LYRICA [Suspect]
     Indication: FIBROMYALGIA
  2. NEURONTIN [Suspect]
     Indication: FIBROMYALGIA
  3. XANAX [Concomitant]
     Indication: SLEEP DISORDER
  4. LAMICTAL [Concomitant]
  5. SEROQUEL [Concomitant]
  6. PREMARIN [Concomitant]
     Indication: HORMONE REPLACEMENT THERAPY
  7. PRILOSEC [Concomitant]
     Indication: GASTROOESOPHAGEAL REFLUX DISEASE
  8. LITHOBID [Concomitant]
  9. QUININE SULFATE [Concomitant]
     Indication: MUSCLE SPASMS
  10. LEVOXYL [Concomitant]
     Indication: THYROID DISORDER

REACTIONS (2)
  - FIBROMYALGIA [None]
  - GAIT DISTURBANCE [None]
